FAERS Safety Report 6500095-5 (Version None)
Quarter: 2009Q4

REPORT INFORMATION
  Report Type: 
  Country: None (occurrence: None)
  Receive Date: 20091216
  Receipt Date: 20091211
  Transmission Date: 20100525
  Serious: Yes (Hospitalization)
  Sender: FDA-Public Use
  Company Number: JP-WYE-H11587809

PATIENT
  Sex: Male
  Weight: 37 kg

DRUGS (10)
  1. ZOSYN [Suspect]
     Indication: PNEUMONIA
     Dosage: 13.5 GRAMS DAILY
     Route: 042
     Dates: start: 20091002, end: 20091007
  2. GASTER [Concomitant]
     Route: 065
  3. DIGOXIN [Concomitant]
     Indication: ATRIAL FIBRILLATION
     Route: 065
  4. MANGANESE CHLORIDE [Concomitant]
     Indication: DRUG USE FOR UNKNOWN INDICATION
     Dosage: 1 A PER DAY
     Route: 042
  5. SODIUM CHLORIDE [Concomitant]
     Indication: DRUG USE FOR UNKNOWN INDICATION
     Dosage: 4 GRAMS PER DAY
     Route: 065
  6. ERYTHROCIN LACTOBIONATE [Concomitant]
     Indication: PROPHYLAXIS
     Route: 048
  7. HUMULIN R [Concomitant]
     Indication: DIABETES MELLITUS
     Route: 058
  8. ZINC SULFATE [Concomitant]
     Indication: DRUG USE FOR UNKNOWN INDICATION
     Dosage: 1 A PER DAY
     Route: 041
  9. VASOLAN [Concomitant]
     Indication: ATRIAL FIBRILLATION
     Route: 048
  10. SPIRONOLACTONE [Concomitant]
     Indication: DRUG USE FOR UNKNOWN INDICATION
     Route: 048

REACTIONS (6)
  - ALANINE AMINOTRANSFERASE INCREASED [None]
  - ASPARTATE AMINOTRANSFERASE INCREASED [None]
  - BLOOD ALKALINE PHOSPHATASE INCREASED [None]
  - CONDITION AGGRAVATED [None]
  - GAMMA-GLUTAMYLTRANSFERASE INCREASED [None]
  - HEPATIC FUNCTION ABNORMAL [None]
